FAERS Safety Report 19836675 (Version 12)
Quarter: 2022Q3

REPORT INFORMATION
  Report Type: Report from Study
  Country: CL (occurrence: CL)
  Receive Date: 20210914
  Receipt Date: 20220727
  Transmission Date: 20221026
  Serious: Yes (Hospitalization, Other)
  Sender: FDA-Public Use
  Company Number: CL-SHIRE-CL201936956

PATIENT
  Age: 14 Year
  Sex: Male
  Weight: 57 kg

DRUGS (7)
  1. IDURSULFASE [Suspect]
     Active Substance: IDURSULFASE
     Indication: Mucopolysaccharidosis II
     Dosage: UNK UNK, 1/WEEK
     Route: 042
     Dates: start: 2018
  2. IDURSULFASE [Suspect]
     Active Substance: IDURSULFASE
     Dosage: 0.5 MILLIGRAM/KILOGRAM, 1/WEEK
     Route: 042
  3. IDURSULFASE [Suspect]
     Active Substance: IDURSULFASE
     Dosage: 5 DOSAGE FORM, TID
     Route: 065
     Dates: start: 202112
  4. CHLORPHENIRAMINE MALEATE [Concomitant]
     Active Substance: CHLORPHENIRAMINE MALEATE
     Indication: Premedication
     Dosage: 10 MILLIGRAM
  5. HYDROCORTISONE [Concomitant]
     Active Substance: HYDROCORTISONE
     Indication: Premedication
     Dosage: 200 MILLIGRAM
  6. AMOXICILLIN [Concomitant]
     Active Substance: AMOXICILLIN
  7. ARIPIPRAZOLE [Concomitant]
     Active Substance: ARIPIPRAZOLE

REACTIONS (17)
  - Tooth extraction [Recovered/Resolved]
  - Tooth infection [Recovering/Resolving]
  - Pyrexia [Unknown]
  - Face oedema [Recovered/Resolved]
  - Erythema [Recovered/Resolved]
  - Choking [Recovered/Resolved]
  - COVID-19 [Recovering/Resolving]
  - Stridor [Unknown]
  - Respiratory disorder [Recovered/Resolved]
  - Swelling face [Recovered/Resolved]
  - Therapy interrupted [Recovered/Resolved]
  - Drug hypersensitivity [Unknown]
  - Infection [Unknown]
  - Ear infection [Recovered/Resolved]
  - Off label use [Unknown]
  - Unevaluable event [Unknown]
  - Hypersensitivity [Unknown]

NARRATIVE: CASE EVENT DATE: 20190801
